FAERS Safety Report 9257919 (Version 1)
Quarter: 2013Q2

REPORT INFORMATION
  Report Type: Spontaneous
  Country: US (occurrence: US)
  Receive Date: 20130426
  Receipt Date: 20130426
  Transmission Date: 20140414
  Serious: No
  Sender: FDA-Public Use
  Company Number: US-GLAXOSMITHKLINE-A0995799A

PATIENT
  Age: 76 Year
  Sex: Female

DRUGS (11)
  1. ZOFRAN [Suspect]
     Indication: PROPHYLAXIS OF NAUSEA AND VOMITING
     Dosage: 4MG THREE TIMES PER DAY
     Route: 048
     Dates: start: 20120913, end: 20120927
  2. COREG [Concomitant]
  3. FENOFIBRATE [Concomitant]
  4. GABAPENTIN [Concomitant]
  5. HCTZ [Concomitant]
  6. LEVOTHYROXINE [Concomitant]
  7. LORAZEPAM [Concomitant]
  8. PROMETHAZINE [Concomitant]
  9. SERTRALINE [Concomitant]
  10. SIMVASTATIN [Concomitant]
  11. TPN [Concomitant]

REACTIONS (1)
  - Nausea [Unknown]
